FAERS Safety Report 11419222 (Version 1)
Quarter: 2015Q3

REPORT INFORMATION
  Report Type: Report from Study
  Country: BR (occurrence: BR)
  Receive Date: 20150826
  Receipt Date: 20150826
  Transmission Date: 20151125
  Serious: Yes (Other)
  Sender: FDA-Public Use
  Company Number: BR-BIOGENIDEC-2015BI117029

PATIENT
  Age: 64 Year
  Sex: Male
  Weight: 76 kg

DRUGS (2)
  1. AVONEX [Suspect]
     Active Substance: INTERFERON BETA-1A
     Indication: MULTIPLE SCLEROSIS
     Route: 030
     Dates: start: 2005
  2. AVONEX [Suspect]
     Active Substance: INTERFERON BETA-1A
     Indication: MULTIPLE SCLEROSIS
     Route: 030
     Dates: start: 2013

REACTIONS (11)
  - Venous occlusion [Not Recovered/Not Resolved]
  - Intervertebral disc protrusion [Not Recovered/Not Resolved]
  - Depression [Not Recovered/Not Resolved]
  - Emphysema [Not Recovered/Not Resolved]
  - Gastrooesophageal reflux disease [Not Recovered/Not Resolved]
  - Chronic obstructive pulmonary disease [Not Recovered/Not Resolved]
  - Oesophagitis [Not Recovered/Not Resolved]
  - Insomnia [Not Recovered/Not Resolved]
  - Hypertension [Not Recovered/Not Resolved]
  - Gastritis [Not Recovered/Not Resolved]
  - Incision site pain [Not Recovered/Not Resolved]
